APPROVED DRUG PRODUCT: LANOXICAPS
Active Ingredient: DIGOXIN
Strength: 0.15MG
Dosage Form/Route: CAPSULE;ORAL
Application: N018118 | Product #004
Applicant: GLAXOSMITHKLINE LLC
Approved: Sep 24, 1984 | RLD: No | RS: No | Type: DISCN